FAERS Safety Report 5612422-1 (Version None)
Quarter: 2008Q1

REPORT INFORMATION
  Report Type: 
  Country: None (occurrence: None)
  Receive Date: 20080204
  Receipt Date: 20080131
  Transmission Date: 20080703
  Serious: Yes (Hospitalization)
  Sender: FDA-Public Use
  Company Number: CA-MERCK-0801CAN00226

PATIENT
  Age: 69 Year
  Sex: Male

DRUGS (17)
  1. INVANZ [Suspect]
     Indication: OSTEOMYELITIS
     Route: 042
     Dates: start: 20071201
  2. ELAVIL [Concomitant]
     Route: 048
  3. LIPITOR [Concomitant]
     Route: 048
  4. COUMADIN [Concomitant]
     Route: 065
  5. OS-CAL [Concomitant]
     Route: 048
  6. PLAVIX [Concomitant]
     Route: 048
  7. COLACE [Concomitant]
     Route: 048
  8. DURAGESIC-100 [Concomitant]
     Route: 065
  9. DURAGESIC-100 [Concomitant]
     Route: 065
  10. PLAQUENIL [Concomitant]
     Route: 048
  11. ATARAX [Concomitant]
     Route: 048
  12. PANTOLOC [Concomitant]
     Route: 048
  13. DELTASONE [Concomitant]
     Route: 048
  14. VANCOCIN INJECTION [Concomitant]
     Route: 042
  15. VITAMIN D (UNSPECIFIED) [Concomitant]
     Route: 065
  16. MONOCOR [Concomitant]
     Route: 048
  17. PENTOXIFYLLINE [Concomitant]
     Route: 048

REACTIONS (1)
  - FALL [None]
